FAERS Safety Report 19902869 (Version 3)
Quarter: 2021Q4

REPORT INFORMATION
  Report Type: Report from Study
  Country: ES (occurrence: None)
  Receive Date: 20211001
  Receipt Date: 20211221
  Transmission Date: 20220304
  Serious: Yes (Other)
  Sender: FDA-Public Use
  Company Number: ES-ROCHE-2919896

PATIENT

DRUGS (6)
  1. TOCILIZUMAB [Suspect]
     Active Substance: TOCILIZUMAB
     Indication: COVID-19 pneumonia
     Dosage: 8 MG/KG IN PATIENTS WEIGHING  30 KG OR 12 MG/KG IN PATIENTS WEIGHING 30 KG AS A 60-MINUTE, IV INFUSI
     Route: 042
     Dates: start: 20200401
  2. TOCILIZUMAB [Suspect]
     Active Substance: TOCILIZUMAB
     Indication: COVID-19 pneumonia
     Route: 042
     Dates: start: 20200501
  3. HYDROXYCHLOROQUINE [Concomitant]
     Active Substance: HYDROXYCHLOROQUINE
     Indication: COVID-19
     Dates: start: 20200428, end: 20200503
  4. LOPINAVIR\RITONAVIR [Concomitant]
     Active Substance: LOPINAVIR\RITONAVIR
     Indication: COVID-19
     Dates: start: 20200428, end: 20200512
  5. PIPERACILLIN SODIUM\TAZOBACTAM SODIUM [Concomitant]
     Active Substance: PIPERACILLIN SODIUM\TAZOBACTAM SODIUM
     Indication: COVID-19
     Dates: start: 20200430, end: 20200514
  6. CYCLOSPORINE [Concomitant]
     Active Substance: CYCLOSPORINE
     Indication: COVID-19
     Dates: start: 20200511, end: 20200611

REACTIONS (1)
  - Acute respiratory distress syndrome [Recovered/Resolved with Sequelae]

NARRATIVE: CASE EVENT DATE: 20200501
